FAERS Safety Report 12183217 (Version 2)
Quarter: 2016Q1

REPORT INFORMATION
  Report Type: Spontaneous
  Country: CN (occurrence: CN)
  Receive Date: 20160316
  Receipt Date: 20160324
  Transmission Date: 20160526
  Serious: Yes (Hospitalization)
  Sender: FDA-Public Use
  Company Number: PHHY2016CN033446

PATIENT
  Age: 10 Year
  Sex: Female

DRUGS (2)
  1. TRILEPTAL [Suspect]
     Active Substance: OXCARBAZEPINE
     Indication: PARTIAL SEIZURES
     Dosage: 150 MG, UNK
     Route: 048
  2. TRILEPTAL [Suspect]
     Active Substance: OXCARBAZEPINE
     Dosage: 300 MG, UNK
     Route: 048

REACTIONS (3)
  - Drug eruption [Recovering/Resolving]
  - Rash [Recovering/Resolving]
  - Oral mucosal exfoliation [Recovering/Resolving]
